FAERS Safety Report 6202842-9 (Version None)
Quarter: 2009Q2

REPORT INFORMATION
  Report Type: 
  Country: None (occurrence: None)
  Receive Date: 20090520
  Receipt Date: 20090508
  Transmission Date: 20091009
  Serious: Yes (Other)
  Sender: FDA-Public Use
  Company Number: 2009AL002903

PATIENT
  Age: 62 Year
  Sex: Male

DRUGS (5)
  1. DIAZEPAM TAB [Suspect]
  2. HALOPERIDOL LACTATE [Suspect]
  3. PROMETHAZINE HCL [Suspect]
  4. CAPTOPRIL [Concomitant]
  5. HYDROCHLOROTHIAZIDE [Concomitant]

REACTIONS (4)
  - CESTODE INFECTION [None]
  - LARGE INTESTINAL OBSTRUCTION [None]
  - MEGACOLON [None]
  - UNDERWEIGHT [None]
